FAERS Safety Report 20540016 (Version 1)
Quarter: 2022Q1

REPORT INFORMATION
  Report Type: Spontaneous
  Country: CN (occurrence: CN)
  Receive Date: 20220302
  Receipt Date: 20220302
  Transmission Date: 20220423
  Serious: Yes (Hospitalization, Other)
  Sender: FDA-Public Use
  Company Number: CN-BAYER-2021A234441

PATIENT
  Age: 78 Year
  Sex: Male

DRUGS (1)
  1. XARELTO [Suspect]
     Active Substance: RIVAROXABAN
     Indication: Coronary artery disease
     Dosage: 1 DF, QD
     Route: 048
     Dates: start: 20210101, end: 20210913

REACTIONS (10)
  - Melaena [Recovered/Resolved]
  - Occult blood positive [Unknown]
  - Blood loss anaemia [Unknown]
  - Haematemesis [Recovered/Resolved]
  - Hepatic cyst [Unknown]
  - Cholelithiasis [Unknown]
  - Renal cyst [Unknown]
  - Benign prostatic hyperplasia [Unknown]
  - Prostatic calcification [Unknown]
  - Off label use [Unknown]

NARRATIVE: CASE EVENT DATE: 20210101
